FAERS Safety Report 6251832-9 (Version None)
Quarter: 2009Q2

REPORT INFORMATION
  Report Type: 
  Country: None (occurrence: None)
  Receive Date: 20090629
  Receipt Date: 20090615
  Transmission Date: 20091009
  Serious: Yes (Other)
  Sender: FDA-Public Use
  Company Number: 2009AL004069

PATIENT
  Sex: Male

DRUGS (1)
  1. FEVERALL [Suspect]

REACTIONS (2)
  - BRONCHOSPASM [None]
  - DERMATITIS ALLERGIC [None]
